FAERS Safety Report 24614851 (Version 1)
Quarter: 2024Q4

REPORT INFORMATION
  Report Type: Spontaneous
  Country: CN (occurrence: CN)
  Receive Date: 20241113
  Receipt Date: 20241113
  Transmission Date: 20250114
  Serious: Yes (Other)
  Sender: ABBVIE
  Company Number: CN-ABBVIE-5999864

PATIENT
  Age: 42 Year
  Sex: Male
  Weight: 62 kg

DRUGS (2)
  1. LOPINAVIR\RITONAVIR [Suspect]
     Active Substance: LOPINAVIR\RITONAVIR
     Indication: HIV test positive
     Dosage: 4 TABLET
     Route: 048
     Dates: start: 20231114, end: 20241108
  2. LOPINAVIR\RITONAVIR [Suspect]
     Active Substance: LOPINAVIR\RITONAVIR
     Indication: HIV test positive
     Route: 048

REACTIONS (1)
  - Dyslipidaemia [Unknown]

NARRATIVE: CASE EVENT DATE: 20241023
